FAERS Safety Report 18386760 (Version 10)
Quarter: 2024Q1

REPORT INFORMATION
  Report Type: Report from Study
  Country: CA (occurrence: CA)
  Receive Date: 20201015
  Receipt Date: 20240122
  Transmission Date: 20240410
  Serious: Yes (Death, Other)
  Sender: FDA-Public Use
  Company Number: CA-PFIZER INC-2020396630

PATIENT
  Age: 72 Year
  Sex: Female
  Weight: 61 kg

DRUGS (51)
  1. PREVACID [Suspect]
     Active Substance: LANSOPRAZOLE
     Dosage: 30 MILLIGRAM, Q12H
     Route: 048
  2. PREVACID [Suspect]
     Active Substance: LANSOPRAZOLE
     Dosage: UNK
     Route: 065
  3. PREVACID [Suspect]
     Active Substance: LANSOPRAZOLE
     Dosage: 30 MILLIGRAM, BID
     Route: 048
  4. PREVACID [Suspect]
     Active Substance: LANSOPRAZOLE
     Dosage: UNK
     Route: 065
  5. PREMARIN [Suspect]
     Active Substance: ESTROGENS, CONJUGATED
     Dosage: 0.625 MILLIGRAM, QD
     Route: 067
  6. PREMARIN [Suspect]
     Active Substance: ESTROGENS, CONJUGATED
     Dosage: UNK
     Route: 065
  7. POTASSIUM CHLORIDE [Suspect]
     Active Substance: POTASSIUM CHLORIDE
     Dosage: 2 DOSAGE FORM, QD
     Route: 048
  8. POTASSIUM CHLORIDE [Suspect]
     Active Substance: POTASSIUM CHLORIDE
     Dosage: UNK
     Route: 065
  9. POTASSIUM CHLORIDE [Suspect]
     Active Substance: POTASSIUM CHLORIDE
     Dosage: UNK
     Route: 065
  10. POTASSIUM CHLORIDE [Suspect]
     Active Substance: POTASSIUM CHLORIDE
     Dosage: 1 DOSAGE FORM, BID
     Route: 048
  11. POTASSIUM CHLORIDE [Suspect]
     Active Substance: POTASSIUM CHLORIDE
     Dosage: UNK
     Route: 048
  12. LAMOTRIGINE [Suspect]
     Active Substance: LAMOTRIGINE
     Dosage: 75 MILLIGRAM, QD
     Route: 048
  13. LAMOTRIGINE [Suspect]
     Active Substance: LAMOTRIGINE
     Dosage: UNK
     Route: 065
  14. BENZTROPINE MESYLATE [Suspect]
     Active Substance: BENZTROPINE MESYLATE
     Dosage: 0.5 MILLIGRAM, BID
     Route: 048
  15. BENZTROPINE MESYLATE [Suspect]
     Active Substance: BENZTROPINE MESYLATE
     Dosage: UNK
     Route: 065
  16. BISACODYL [Suspect]
     Active Substance: BISACODYL
     Dosage: 5 MILLIGRAM
     Route: 048
  17. BISACODYL [Suspect]
     Active Substance: BISACODYL
     Dosage: 0.5 MILLIGRAM
     Route: 048
  18. BISACODYL [Suspect]
     Active Substance: BISACODYL
     Dosage: UNK
     Route: 048
  19. BUPROPION HYDROCHLORIDE [Suspect]
     Active Substance: BUPROPION HYDROCHLORIDE
     Dosage: 150 MILLIGRAM, QD
     Route: 048
  20. BUPROPION HYDROCHLORIDE [Suspect]
     Active Substance: BUPROPION HYDROCHLORIDE
     Dosage: UNK
     Route: 065
  21. CLEARLAX [Suspect]
     Active Substance: POLYETHYLENE GLYCOL 3350
     Dosage: 17 GRAM, QD
     Route: 048
  22. CLEARLAX [Suspect]
     Active Substance: POLYETHYLENE GLYCOL 3350
     Dosage: UNK
     Route: 065
  23. CLONAZEPAM [Suspect]
     Active Substance: CLONAZEPAM
     Dosage: 0.25 MILLIGRAM
     Route: 048
  24. CLONAZEPAM [Suspect]
     Active Substance: CLONAZEPAM
     Dosage: UNK
     Route: 065
  25. FLOVENT HFA [Suspect]
     Active Substance: FLUTICASONE PROPIONATE
     Dosage: 500 MICROGRAM, QD
     Route: 055
  26. FLOVENT HFA [Suspect]
     Active Substance: FLUTICASONE PROPIONATE
     Dosage: 500 MICROGRAM, QD
     Route: 055
  27. FLOVENT HFA [Suspect]
     Active Substance: FLUTICASONE PROPIONATE
     Dosage: 500 MILLIGRAM, QD
     Route: 055
  28. FLOVENT HFA [Suspect]
     Active Substance: FLUTICASONE PROPIONATE
     Dosage: UNK
     Route: 065
  29. FLOVENT HFA [Suspect]
     Active Substance: FLUTICASONE PROPIONATE
     Dosage: 250 MILLIGRAM, BID
     Route: 055
  30. FLOVENT HFA [Suspect]
     Active Substance: FLUTICASONE PROPIONATE
     Dosage: 250 MILLIGRAM, BID
     Route: 055
  31. FLOVENT HFA [Suspect]
     Active Substance: FLUTICASONE PROPIONATE
     Dosage: 250 MICROGRAM, BID
     Route: 055
  32. LINACLOTIDE [Suspect]
     Active Substance: LINACLOTIDE
     Indication: Irritable bowel syndrome
     Dosage: 145 MICROGRAM, QD
     Route: 048
  33. LINACLOTIDE [Suspect]
     Active Substance: LINACLOTIDE
     Dosage: UNK
     Route: 065
  34. MELATONIN [Suspect]
     Active Substance: MELATONIN
     Dosage: 3 MILLIGRAM, QD
     Route: 060
  35. MELATONIN [Suspect]
     Active Substance: MELATONIN
     Dosage: UNK
     Route: 065
  36. SODIUM CITRATE\SODIUM LAURYL SULFOACETATE [Suspect]
     Active Substance: SODIUM CITRATE\SODIUM LAURYL SULFOACETATE
     Dosage: 1 DOSAGE FORM
     Route: 054
  37. SODIUM CITRATE\SODIUM LAURYL SULFOACETATE [Suspect]
     Active Substance: SODIUM CITRATE\SODIUM LAURYL SULFOACETATE
     Dosage: UNK
     Route: 065
  38. SYNTHROID [Suspect]
     Active Substance: LEVOTHYROXINE SODIUM
     Dosage: 125 MICROGRAM, QD
     Route: 048
  39. SYNTHROID [Suspect]
     Active Substance: LEVOTHYROXINE SODIUM
     Dosage: 125 MILLIGRAM, QD
     Route: 048
  40. SYNTHROID [Suspect]
     Active Substance: LEVOTHYROXINE SODIUM
     Dosage: UNK
     Route: 065
  41. ZOFRAN [Suspect]
     Active Substance: ONDANSETRON HYDROCHLORIDE
     Dosage: 4 MILLIGRAM
     Route: 060
  42. ZOFRAN [Suspect]
     Active Substance: ONDANSETRON HYDROCHLORIDE
     Dosage: UNK
     Route: 065
  43. ONDANSETRON [Suspect]
     Active Substance: ONDANSETRON
     Dosage: 4 MILLIGRAM
     Route: 060
  44. SODIUM CITRATE [Suspect]
     Active Substance: SODIUM CITRATE
     Dosage: UNK
     Route: 065
  45. SODIUM LAURYL SULFOACETATE [Suspect]
     Active Substance: SODIUM LAURYL SULFOACETATE
     Dosage: UNK
     Route: 065
  46. POLYETHYLENE GLYCOL 3350 [Suspect]
     Active Substance: POLYETHYLENE GLYCOL 3350
     Dosage: 17 GRAM, QD
     Route: 048
  47. POLYETHYLENE GLYCOL 3350 [Suspect]
     Active Substance: POLYETHYLENE GLYCOL 3350
     Dosage: UNK
     Route: 065
  48. POLYETHYLENE GLYCOL 3350 [Suspect]
     Active Substance: POLYETHYLENE GLYCOL 3350
     Dosage: 17 GRAM, QD
     Route: 048
  49. SYNTHROID [Concomitant]
     Active Substance: LEVOTHYROXINE SODIUM
     Dosage: UNK
  50. PREVACID [Concomitant]
     Active Substance: LANSOPRAZOLE
     Dosage: UNK
  51. POTASSIUM CHLORIDE [Concomitant]
     Active Substance: POTASSIUM CHLORIDE
     Dosage: UNK

REACTIONS (1)
  - Cardiac arrest [Fatal]
